FAERS Safety Report 6541989-4 (Version None)
Quarter: 2010Q1

REPORT INFORMATION
  Report Type: 
  Country: None (occurrence: None)
  Receive Date: 20100119
  Receipt Date: 20100112
  Transmission Date: 20100710
  Serious: Yes (Other)
  Sender: FDA-Public Use
  Company Number: CA-JNJFOC-20100104644

PATIENT
  Age: 40 Year
  Sex: Female

DRUGS (2)
  1. CAELYX [Suspect]
     Indication: OVARIAN CANCER
     Route: 042
  2. PANTOPRAZOLE [Concomitant]
     Indication: GASTROOESOPHAGEAL REFLUX DISEASE
     Route: 065

REACTIONS (2)
  - CHEST DISCOMFORT [None]
  - PARAESTHESIA [None]
